FAERS Safety Report 11692412 (Version 1)
Quarter: 2015Q4

REPORT INFORMATION
  Report Type: Spontaneous
  Country: PL (occurrence: PL)
  Receive Date: 20151103
  Receipt Date: 20151103
  Transmission Date: 20160304
  Serious: Yes (Death, Other)
  Sender: FDA-Public Use
  Company Number: PL-ROCHE-1651551

PATIENT
  Sex: Male

DRUGS (18)
  1. TACROLIMUS. [Concomitant]
     Active Substance: TACROLIMUS
     Dosage: } 15 NG/ML
     Route: 065
  2. RIFAXIMIN [Concomitant]
     Active Substance: RIFAXIMIN
     Route: 048
  3. METRONIDAZOLE. [Concomitant]
     Active Substance: METRONIDAZOLE
     Route: 048
  4. AZA [Concomitant]
     Active Substance: AZATHIOPRINE
     Route: 065
  5. BASILIXIMAB [Concomitant]
     Active Substance: BASILIXIMAB
     Dosage: ON DAY 1 AND 4
     Route: 065
  6. CELLCEPT [Suspect]
     Active Substance: MYCOPHENOLATE MOFETIL\MYCOPHENOLATE MOFETIL HYDROCHLORIDE
     Indication: LIVER TRANSPLANT
     Route: 065
  7. PREDNISOLONE. [Concomitant]
     Active Substance: PREDNISOLONE
     Route: 048
  8. 5-ASA [Concomitant]
     Active Substance: MESALAMINE
     Dosage: 2-4 G
     Route: 048
  9. FLUCONAZOLE. [Concomitant]
     Active Substance: FLUCONAZOLE
  10. HYDROCORTISONE. [Concomitant]
     Active Substance: HYDROCORTISONE
     Dosage: 3 X 100 MG
     Route: 042
  11. CIPROFLOXACIN. [Concomitant]
     Active Substance: CIPROFLOXACIN
  12. METHYLPREDNISOLONE. [Concomitant]
     Active Substance: METHYLPREDNISOLONE
     Dosage: PULSES FOR 3 DAYS
     Route: 042
  13. METHYLPREDNISOLONE. [Concomitant]
     Active Substance: METHYLPREDNISOLONE
     Dosage: 2 X 125 MG
     Route: 042
  14. TACROLIMUS. [Concomitant]
     Active Substance: TACROLIMUS
     Dosage: 10-12 NG/ML
     Route: 065
  15. CELLCEPT [Suspect]
     Active Substance: MYCOPHENOLATE MOFETIL\MYCOPHENOLATE MOFETIL HYDROCHLORIDE
     Route: 048
  16. VANCOMYCIN [Concomitant]
     Active Substance: VANCOMYCIN
  17. BUDESONID [Concomitant]
     Active Substance: BUDESONIDE
     Route: 048
  18. IMIPENEM [Concomitant]
     Active Substance: IMIPENEM

REACTIONS (13)
  - Pneumonia [Recovered/Resolved]
  - Fungaemia [Unknown]
  - Neutropenia [Unknown]
  - Multi-organ failure [Fatal]
  - Psychiatric symptom [Unknown]
  - Leukopenia [Unknown]
  - Disseminated intravascular coagulation [Unknown]
  - Anaemia [Unknown]
  - Graft versus host disease [Unknown]
  - Nervous system disorder [Unknown]
  - Neurological symptom [Unknown]
  - Vasculitis [Fatal]
  - Diarrhoea [Unknown]
